FAERS Safety Report 4423798-5 (Version None)
Quarter: 2004Q3

REPORT INFORMATION
  Report Type: 
  Country: None (occurrence: None)
  Receive Date: 20040719
  Receipt Date: 20040412
  Transmission Date: 20050211
  Serious: No
  Sender: FDA-Public Use
  Company Number: A03200401125

PATIENT
  Age: 84 Year
  Sex: Male

DRUGS (8)
  1. UROXATRAL [Suspect]
     Indication: INFECTION
     Dosage: 10 MG OD; ORAL
     Route: 048
     Dates: start: 20040101, end: 20040301
  2. SIMVASTATIN [Concomitant]
  3. HYDROCHLOROTHIAZIDE [Concomitant]
  4. FOSINOPRIL SODIUM [Concomitant]
  5. AMIODARONE HCL [Concomitant]
  6. NIACIN [Concomitant]
  7. FOLIC ACID [Concomitant]
  8. VITAMIN B-12 [Concomitant]

REACTIONS (1)
  - HAEMOGLOBIN DECREASED [None]
